FAERS Safety Report 20765180 (Version 1)
Quarter: 2022Q2

REPORT INFORMATION
  Report Type: Spontaneous
  Country: GB (occurrence: GB)
  Receive Date: 20220428
  Receipt Date: 20220428
  Transmission Date: 20220721
  Serious: Yes (Other)
  Sender: FDA-Public Use
  Company Number: GB-PFIZER INC-202200603013

PATIENT
  Sex: Male

DRUGS (1)
  1. LYRICA [Interacting]
     Active Substance: PREGABALIN
     Indication: Anxiety
     Dosage: 200 MG, DAILY
     Dates: start: 2021

REACTIONS (8)
  - Alcohol interaction [Unknown]
  - Suicidal ideation [Unknown]
  - Fatigue [Unknown]
  - Listless [Unknown]
  - Agitation [Unknown]
  - Depression [Unknown]
  - Irritability [Unknown]
  - Anxiety [Unknown]
